FAERS Safety Report 5900237-6 (Version None)
Quarter: 2008Q3

REPORT INFORMATION
  Report Type: 
  Country: None (occurrence: None)
  Receive Date: 20080926
  Receipt Date: 20080916
  Transmission Date: 20090109
  Serious: Yes (Other)
  Sender: FDA-Public Use
  Company Number: GR-JNJFOC-20080702946

PATIENT
  Sex: Female

DRUGS (5)
  1. TOPAMAC [Suspect]
     Route: 048
  2. TOPAMAC [Suspect]
     Route: 048
  3. TOPAMAC [Suspect]
     Indication: EPILEPSY
     Route: 048
  4. TRILEPTAL [Concomitant]
     Indication: EPILEPSY
     Route: 048
  5. KEPPRA [Concomitant]
     Indication: DRUG USE FOR UNKNOWN INDICATION

REACTIONS (3)
  - DEPRESSION [None]
  - SELF INJURIOUS BEHAVIOUR [None]
  - SUICIDAL IDEATION [None]
